FAERS Safety Report 5207779-X (Version None)
Quarter: 2006Q4

REPORT INFORMATION
  Report Type: 
  Country: None (occurrence: None)
  Receive Date: 20061030
  Receipt Date: 20060728
  Transmission Date: 20070319
  Serious: No
  Sender: FDA-Public Use
  Company Number: 255926

PATIENT
  Age: 5 Year
  Sex: Male
  Weight: 36.3 kg

DRUGS (6)
  1. LEVEMIR [Suspect]
     Indication: DIABETES MELLITUS INSULIN-DEPENDENT
     Dosage: 24 IU, SUBCUTANEOUS
     Route: 058
     Dates: start: 20060101
  2. NOVOLOG FLEXPEN (INSULIN ASPART) [Concomitant]
  3. LEXAPRO [Concomitant]
  4. KLONOPIN [Concomitant]
  5. RISPERDAL [Concomitant]
  6. REMERON [Concomitant]

REACTIONS (1)
  - WEIGHT DECREASED [None]
